FAERS Safety Report 4432972-3 (Version None)
Quarter: 2004Q3

REPORT INFORMATION
  Report Type: 
  Country: None (occurrence: None)
  Receive Date: 20040823
  Receipt Date: 20040810
  Transmission Date: 20050211
  Serious: Yes (Other)
  Sender: FDA-Public Use
  Company Number: 2004228915US

PATIENT
  Sex: Female

DRUGS (5)
  1. PROVERA [Suspect]
  2. PREMPHASE 14/14 [Suspect]
  3. PREMARIN [Suspect]
  4. ORTHO-PREFEST(ESTRADIOL, NORGESTIMATE) [Suspect]
  5. ESTROGENS [Suspect]

REACTIONS (1)
  - BREAST CANCER FEMALE [None]
